FAERS Safety Report 25902313 (Version 1)
Quarter: 2025Q4

REPORT INFORMATION
  Report Type: Spontaneous
  Country: US (occurrence: US)
  Receive Date: 20251009
  Receipt Date: 20251009
  Transmission Date: 20260117
  Serious: No
  Sender: CB FLEET
  Company Number: US-PRESTIGE-202504-US-001007

PATIENT
  Age: 31 Year
  Sex: Female

DRUGS (1)
  1. MONISTAT 7 [Suspect]
     Active Substance: MICONAZOLE NITRATE
     Indication: Fungal infection
     Dosage: USED THE PRODUCT SATURDAY NIGHT AND SHE HAS NOT USED THE PRODUCT SINCE.
     Route: 067

REACTIONS (3)
  - Vulvovaginal swelling [Not Recovered/Not Resolved]
  - Diarrhoea [Not Recovered/Not Resolved]
  - Nausea [Not Recovered/Not Resolved]
